FAERS Safety Report 12768984 (Version 1)
Quarter: 2016Q3

REPORT INFORMATION
  Report Type: Spontaneous
  Country: US (occurrence: US)
  Receive Date: 20160921
  Receipt Date: 20160921
  Transmission Date: 20161109
  Serious: No
  Sender: FDA-Public Use
  Company Number: US-JAZZ-2016-US-010208

PATIENT
  Age: 30 Year
  Sex: Female

DRUGS (31)
  1. XYREM [Suspect]
     Active Substance: SODIUM OXYBATE
     Indication: NARCOLEPSY
     Dosage: 2.25 G, BID
     Route: 048
     Dates: start: 201603, end: 201603
  2. XYREM [Suspect]
     Active Substance: SODIUM OXYBATE
     Dosage: 4.5 G, BID
     Route: 048
     Dates: start: 201604
  3. AMBIEN [Concomitant]
     Active Substance: ZOLPIDEM TARTRATE
  4. AMOXICILLIN. [Concomitant]
     Active Substance: AMOXICILLIN
  5. FERROUS SULFATE. [Concomitant]
     Active Substance: FERROUS SULFATE
  6. VALACYCLOVIR HCL [Concomitant]
     Active Substance: VALACYCLOVIR HYDROCHLORIDE
  7. NUVIGIL [Concomitant]
     Active Substance: ARMODAFINIL
  8. PREDNISONE. [Concomitant]
     Active Substance: PREDNISONE
  9. AZITHROMYCIN ANHYDROUS. [Concomitant]
     Active Substance: AZITHROMYCIN ANHYDROUS
  10. BUPROPION HYDROCHLORIDE XL [Concomitant]
     Active Substance: BUPROPION HYDROCHLORIDE
  11. TURMERIC [Concomitant]
     Active Substance: TURMERIC
  12. XYREM [Suspect]
     Active Substance: SODIUM OXYBATE
     Dosage: DOSE ADJUSTMENTS
     Route: 048
     Dates: start: 2016, end: 2016
  13. LINZESS [Concomitant]
     Active Substance: LINACLOTIDE
  14. BUSPIRONE HCL [Concomitant]
     Active Substance: BUSPIRONE HYDROCHLORIDE
  15. LIDOCAINE. [Concomitant]
     Active Substance: LIDOCAINE
  16. LYRICA [Concomitant]
     Active Substance: PREGABALIN
  17. PENNSAID [Concomitant]
     Active Substance: DICLOFENAC SODIUM
  18. PROMETHAZINE HCL [Concomitant]
     Active Substance: PROMETHAZINE HYDROCHLORIDE
  19. AMITRIPTYLINE HCL [Concomitant]
     Active Substance: AMITRIPTYLINE
  20. NORCO [Concomitant]
     Active Substance: ACETAMINOPHEN\HYDROCODONE BITARTRATE
  21. OXYCONTIN [Concomitant]
     Active Substance: OXYCODONE HYDROCHLORIDE
  22. RESTASIS [Concomitant]
     Active Substance: CYCLOSPORINE
  23. VOLTAREN [Concomitant]
     Active Substance: DICLOFENAC SODIUM
  24. INTEGRA F [Concomitant]
     Active Substance: ASCORBIC ACID\FERROUS ASPARTO GLYCINATE\FERROUS FUMARATE\FOLIC ACID\NIACIN
  25. CALCIUM 500+D [Concomitant]
     Active Substance: CALCIUM\VITAMIN D
  26. L-CARNITINE [Concomitant]
     Active Substance: LEVOCARNITINE
  27. DEXILANT DR [Concomitant]
  28. HYQVIA [Concomitant]
     Active Substance: HUMAN IMMUNOGLOBULIN G\HYALURONIDASE RECOMBINANT HUMAN
  29. PULMICORT TURBUHALER [Concomitant]
     Active Substance: BUDESONIDE
  30. SYMAX [Concomitant]
     Active Substance: HYOSCYAMINE SULFATE
  31. XARELTO [Concomitant]
     Active Substance: RIVAROXABAN

REACTIONS (6)
  - Blood sodium decreased [Not Recovered/Not Resolved]
  - Hypotension [Recovered/Resolved]
  - Pre-existing condition improved [Unknown]
  - Blood potassium decreased [Not Recovered/Not Resolved]
  - Blood chloride decreased [Not Recovered/Not Resolved]
  - Blood calcium decreased [Not Recovered/Not Resolved]

NARRATIVE: CASE EVENT DATE: 2016
